FAERS Safety Report 6492047-9 (Version None)
Quarter: 2009Q4

REPORT INFORMATION
  Report Type: 
  Country: None (occurrence: None)
  Receive Date: 20091208
  Receipt Date: 20091124
  Transmission Date: 20100525
  Serious: Yes (Death)
  Sender: FDA-Public Use
  Company Number: A-US2009-29284

PATIENT
  Age: 27 Year
  Sex: Female

DRUGS (1)
  1. TRACLEER [Suspect]
     Indication: PULMONARY ARTERIAL HYPERTENSION
     Dosage: UNK MG, UNK, ORAL
     Route: 048
     Dates: start: 20090501, end: 20090701

REACTIONS (1)
  - PULMONARY HAEMORRHAGE [None]
